FAERS Safety Report 26172995 (Version 1)
Quarter: 2025Q4

REPORT INFORMATION
  Report Type: Spontaneous
  Country: IN (occurrence: IN)
  Receive Date: 20251218
  Receipt Date: 20251218
  Transmission Date: 20260117
  Serious: Yes (Other)
  Sender: CADILA
  Company Number: IN-CPL-006014

PATIENT
  Age: 55 Year
  Sex: Male

DRUGS (1)
  1. SILDENAFIL [Suspect]
     Active Substance: SILDENAFIL
     Indication: Libido disorder
     Dosage: INGESTED A SINGLE 100 MG DOSE

REACTIONS (2)
  - Retinal vein occlusion [Recovered/Resolved]
  - Macular oedema [Recovered/Resolved]
